FAERS Safety Report 15753529 (Version 1)
Quarter: 2018Q4

REPORT INFORMATION
  Report Type: Spontaneous
  Country: IT (occurrence: IT)
  Receive Date: 20181222
  Receipt Date: 20181222
  Transmission Date: 20190205
  Serious: Yes (Hospitalization)
  Sender: FDA-Public Use
  Company Number: IT-TEVA-2018-IT-989715

PATIENT
  Age: 85 Year
  Sex: Male

DRUGS (10)
  1. OLMESARTAN MEDOXOMIL. [Suspect]
     Active Substance: OLMESARTAN MEDOXOMIL
     Dosage: 40 MILLIGRAM DAILY;
     Route: 065
  2. RASILEZ [Suspect]
     Active Substance: ALISKIREN
     Dosage: 300 MILLIGRAM DAILY;
     Route: 065
  3. FINASTERIDE. [Concomitant]
     Active Substance: FINASTERIDE
     Route: 065
  4. AMIODARONE [Suspect]
     Active Substance: AMIODARONE
     Route: 065
  5. LASIX [Suspect]
     Active Substance: FUROSEMIDE
     Dosage: 25 MILLIGRAM DAILY;
     Route: 065
  6. ADENURIC 80 MG FILM-COATED TABLETS [Concomitant]
     Route: 065
  7. INEGY 10 MG/10 MG COMPRESSE [Concomitant]
     Active Substance: EZETIMIBE\SIMVASTATIN
     Route: 065
  8. CARDIRENE [Concomitant]
     Active Substance: ASPIRIN DL-LYSINE
     Route: 065
  9. ZANEDIP [Concomitant]
     Active Substance: LERCANIDIPINE HYDROCHLORIDE
     Route: 065
  10. INDAPAMIDE. [Suspect]
     Active Substance: INDAPAMIDE
     Dosage: 1.5 MILLIGRAM DAILY;
     Route: 065

REACTIONS (5)
  - Syncope [Not Recovered/Not Resolved]
  - Bundle branch block right [Not Recovered/Not Resolved]
  - Bundle branch block left [Not Recovered/Not Resolved]
  - Renal failure [Not Recovered/Not Resolved]
  - Atrioventricular block [Not Recovered/Not Resolved]

NARRATIVE: CASE EVENT DATE: 20181105
